FAERS Safety Report 6149931-5 (Version None)
Quarter: 2009Q2

REPORT INFORMATION
  Report Type: 
  Country: None (occurrence: None)
  Receive Date: 20090409
  Receipt Date: 20090407
  Transmission Date: 20091009
  Serious: Yes (Hospitalization)
  Sender: FDA-Public Use
  Company Number: US-EISAI MEDICAL RESEARCH-E2080-00139-CLI-US

PATIENT
  Sex: Male
  Weight: 118.5 kg

DRUGS (14)
  1. E2080 [Suspect]
     Indication: EPILEPSY
     Route: 048
     Dates: start: 20080805
  2. TOPIRAMATE [Concomitant]
     Indication: EPILEPSY
     Route: 048
     Dates: start: 20090330
  3. GEMFIBROZIL [Concomitant]
     Indication: BLOOD CHOLESTEROL
     Route: 048
     Dates: start: 20080929
  4. DOXYCYCLINE [Concomitant]
     Indication: ACNE
     Route: 048
     Dates: start: 20090216
  5. CYMBALTA [Concomitant]
     Indication: ANXIETY
     Route: 048
     Dates: start: 20090309
  6. CYMBALTA [Concomitant]
     Indication: DEPRESSION
  7. VALPROIC ACID [Concomitant]
     Indication: CONVULSION
     Route: 048
     Dates: start: 19920101
  8. SEROQUEL [Concomitant]
     Indication: PSYCHOTIC DISORDER
     Route: 048
     Dates: start: 20040101
  9. SERTRALINE HCL [Concomitant]
     Indication: DEPRESSION
     Route: 048
     Dates: start: 20040101
  10. AMANTADINE HCL [Concomitant]
     Indication: EXTRAPYRAMIDAL DISORDER
     Route: 048
     Dates: start: 20060101
  11. MUPIROCIN [Concomitant]
     Dosage: 2%
     Route: 061
     Dates: start: 20090401
  12. ACETAMINOPHEN [Concomitant]
     Indication: PAIN
     Dosage: 650MG
     Route: 048
     Dates: start: 20090401
  13. FLUCINONIDE [Concomitant]
     Indication: PRURITUS
     Route: 061
     Dates: start: 20090401
  14. HALOPERIDOL [Concomitant]
     Indication: AGITATION
     Route: 048
     Dates: start: 20090401

REACTIONS (2)
  - DEPRESSION [None]
  - SUICIDAL IDEATION [None]
